FAERS Safety Report 10949915 (Version 1)
Quarter: 2015Q1

REPORT INFORMATION
  Report Type: Spontaneous
  Country: US (occurrence: None)
  Receive Date: 20150323
  Receipt Date: 20150323
  Transmission Date: 20150721
  Serious: Yes (Other)
  Sender: FDA-Public Use
  Company Number: None

PATIENT
  Age: 54 Year
  Sex: Female
  Weight: 68.95 kg

DRUGS (15)
  1. TRULICITY [Suspect]
     Active Substance: DULAGLUTIDE
     Indication: DIABETES MELLITUS
     Dosage: 1 INJECTION EVERY 7 DAYS ONCE PER WEEK GIVEN INTO/UNDER THE SKIN
     Dates: start: 20150208, end: 20150308
  2. LOSARTAN [Concomitant]
     Active Substance: LOSARTAN
  3. VITAMIN B12 [Concomitant]
     Active Substance: CYANOCOBALAMIN
  4. CHONDROITIN [Concomitant]
     Active Substance: CHONDROITIN
  5. METFORMIN XR [Concomitant]
  6. D-3 [Concomitant]
     Active Substance: CHOLECALCIFEROL
  7. ALLEGRA [Concomitant]
     Active Substance: FEXOFENADINE HYDROCHLORIDE
  8. NASACORT AQ [Concomitant]
     Active Substance: TRIAMCINOLONE ACETONIDE
  9. ASPIRIN. [Concomitant]
     Active Substance: ASPIRIN
  10. BYDUREON [Concomitant]
     Active Substance: EXENATIDE
  11. GLUCOSAMINE [Concomitant]
     Active Substance: GLUCOSAMINE
  12. ATENOLOL. [Concomitant]
     Active Substance: ATENOLOL
  13. SYNTHROID [Concomitant]
     Active Substance: LEVOTHYROXINE SODIUM
  14. CALCIUM [Concomitant]
     Active Substance: CALCIUM
  15. PRAVASTATIN [Concomitant]
     Active Substance: PRAVASTATIN\PRAVASTATIN SODIUM

REACTIONS (6)
  - Injection site discolouration [None]
  - Drug hypersensitivity [None]
  - Injection site warmth [None]
  - Injection site erythema [None]
  - Injection site urticaria [None]
  - Injection site pruritus [None]

NARRATIVE: CASE EVENT DATE: 20150309
